FAERS Safety Report 16880074 (Version 1)
Quarter: 2019Q4

REPORT INFORMATION
  Report Type: Spontaneous
  Country: ES (occurrence: ES)
  Receive Date: 20191003
  Receipt Date: 20191003
  Transmission Date: 20200122
  Serious: Yes (Other)
  Sender: FDA-Public Use
  Company Number: ES-MYLANLABS-2019M1091734

PATIENT
  Age: 4 Year

DRUGS (3)
  1. CLOXACILLIN [Suspect]
     Active Substance: CLOXACILLIN
     Indication: PNEUMONIA
     Route: 065
  2. LINEZOLID. [Suspect]
     Active Substance: LINEZOLID
     Indication: PNEUMONIA
     Route: 065
  3. GENTAMICIN. [Suspect]
     Active Substance: GENTAMICIN
     Indication: PNEUMONIA
     Route: 065

REACTIONS (1)
  - Drug ineffective [Unknown]
